FAERS Safety Report 21500003 (Version 1)
Quarter: 2022Q4

REPORT INFORMATION
  Report Type: Spontaneous
  Country: US (occurrence: US)
  Receive Date: 20221024
  Receipt Date: 20221024
  Transmission Date: 20230112
  Serious: No
  Sender: FDA-Public Use
  Company Number: US-PFIZER INC-202201245469

PATIENT
  Age: 56 Year
  Sex: Female
  Weight: 52.16 kg

DRUGS (3)
  1. LEVOXYL [Suspect]
     Active Substance: LEVOTHYROXINE SODIUM
     Indication: Adenoma benign
     Dosage: 100 UG, 1X/DAY
     Dates: start: 2009
  2. LEVOXYL [Suspect]
     Active Substance: LEVOTHYROXINE SODIUM
     Dosage: UNK, WEEKLY (0.88 PLUS HALF TABLET ONCE A WEEK ON SUNDAYS)
  3. LEVOXYL [Suspect]
     Active Substance: LEVOTHYROXINE SODIUM
     Dosage: UNK (^TWIK HER DOSE^ WITH AN EXTRA HALF OF A TABLET).

REACTIONS (3)
  - Alopecia [Unknown]
  - Intentional product use issue [Unknown]
  - Off label use [Unknown]
